FAERS Safety Report 4458968-3 (Version None)
Quarter: 2004Q3

REPORT INFORMATION
  Report Type: 
  Country: None (occurrence: None)
  Receive Date: 20040920
  Receipt Date: 20040920
  Transmission Date: 20050211
  Serious: No
  Sender: FDA-Public Use
  Company Number: None

PATIENT
  Age: 75 Year
  Sex: Male
  Weight: 51 kg

DRUGS (1)
  1. METHYLPREDNISOLONE [Suspect]
     Indication: CHRONIC OBSTRUCTIVE AIRWAYS DISEASE EXACERBATED
     Dosage: 40 MG IV Q 12 H
     Route: 042
     Dates: start: 20040715, end: 20040809

REACTIONS (1)
  - LEUKOCYTOSIS [None]
